FAERS Safety Report 7174851-7 (Version None)
Quarter: 2010Q4

REPORT INFORMATION
  Report Type: 
  Country: None (occurrence: None)
  Receive Date: 20101219
  Receipt Date: 20101020
  Transmission Date: 20110411
  Serious: No
  Sender: FDA-Public Use
  Company Number: US-AMGEN-KDL393465

PATIENT

DRUGS (7)
  1. ENBREL [Suspect]
     Indication: RHEUMATOID ARTHRITIS
     Dosage: 50 MG, QWK
     Route: 058
     Dates: start: 20100105
  2. NAPROSYN [Concomitant]
     Dosage: 250 MG, UNK
  3. PLAQUENIL [Concomitant]
     Dosage: 200 MG, UNK
  4. VITAMIN A [Concomitant]
     Dosage: UNK UNIT, UNK
  5. MULTIVITIAMIN [Concomitant]
  6. LEVOXYL [Concomitant]
     Dosage: 25 UNK, UNK
  7. OMEGA 3                            /00931501/ [Concomitant]
     Dosage: 100 MG, UNK

REACTIONS (3)
  - EXCORIATION [None]
  - IMPAIRED HEALING [None]
  - INJECTION SITE ERYTHEMA [None]
